FAERS Safety Report 15543696 (Version 2)
Quarter: 2018Q4

REPORT INFORMATION
  Report Type: Spontaneous
  Country: US (occurrence: US)
  Receive Date: 20181023
  Receipt Date: 20181121
  Transmission Date: 20190205
  Serious: Yes (Hospitalization)
  Sender: FDA-Public Use
  Company Number: US-GLAXOSMITHKLINE-US2018189493

PATIENT
  Sex: Male

DRUGS (1)
  1. ADVAIR DISKUS [Suspect]
     Active Substance: FLUTICASONE PROPIONATE\SALMETEROL XINAFOATE
     Indication: BREATH SOUNDS ABNORMAL
     Dosage: 1 PUFF(S), BID

REACTIONS (5)
  - Cough [Unknown]
  - Condition aggravated [Unknown]
  - Product complaint [Unknown]
  - Overdose [Unknown]
  - Breath sounds abnormal [Unknown]
